FAERS Safety Report 8101786-5 (Version None)
Quarter: 2012Q1

REPORT INFORMATION
  Report Type: 
  Country: None (occurrence: None)
  Receive Date: 20120131
  Receipt Date: 20120124
  Transmission Date: 20120608
  Serious: Yes (Hospitalization)
  Sender: FDA-Public Use
  Company Number: PHEH2011US012725

PATIENT
  Sex: Female

DRUGS (11)
  1. GILENYA [Suspect]
     Indication: MULTIPLE SCLEROSIS
     Dosage: 0.5 MG, QD
     Route: 048
     Dates: start: 20111206, end: 20111221
  2. OMEPRAZOLE [Concomitant]
     Dosage: 40 MG, QD
  3. ESTRADIOL [Concomitant]
     Dosage: 1 MG, QD
  4. PAXIL [Concomitant]
     Dosage: 20 MG, QD
  5. TRAZODONE HCL [Concomitant]
     Dosage: 100 MG, QD
  6. AMPYRA [Concomitant]
     Dosage: 10 MG, Q12H
  7. DOCUSATE SODIUM [Concomitant]
  8. TIZANIDINE HCL [Concomitant]
     Dosage: 4 MG, QD
  9. LISINOPRIL [Concomitant]
     Dosage: 10 MG, QD
  10. XANAX [Concomitant]
     Dosage: 0.25 MG, PRN
  11. CALCIUM WITH VITAMIN D [Concomitant]
     Dosage: 600 MG, BID

REACTIONS (8)
  - CONFUSIONAL STATE [None]
  - HYPERTENSION [None]
  - SOMNOLENCE [None]
  - COUGH [None]
  - CONVULSION [None]
  - HEADACHE [None]
  - BRAIN OEDEMA [None]
  - POSTERIOR REVERSIBLE ENCEPHALOPATHY SYNDROME [None]
